FAERS Safety Report 4850134-2 (Version None)
Quarter: 2005Q4

REPORT INFORMATION
  Report Type: 
  Country: None (occurrence: None)
  Receive Date: 20051123
  Receipt Date: 20050611
  Transmission Date: 20060501
  Serious: Yes (Other)
  Sender: FDA-Public Use
  Company Number: 2005045945

PATIENT
  Age: 83 Year
  Sex: Female
  Weight: 77.1115 kg

DRUGS (10)
  1. LIPITOR [Suspect]
     Indication: BLOOD CHOLESTEROL
     Dosage: 20 MG (20 MG,1 IN 1 D),ORAL
     Route: 048
     Dates: start: 20041101, end: 20050201
  2. LIPITOR [Suspect]
     Indication: CORONARY ARTERY DISEASE
     Dosage: 20 MG (20 MG,1 IN 1 D),ORAL
     Route: 048
     Dates: start: 20041101, end: 20050201
  3. VERAPAMIL [Concomitant]
  4. MAXZIDE [Concomitant]
  5. ATENOLOL [Concomitant]
  6. VITAMINS (VITAMINS) [Concomitant]
  7. ALL OTHER THERAPEUTIC PRODUCTS (ALL OTHER THERAPEUTIC PRODUCTS) [Concomitant]
  8. ASPIRIN [Concomitant]
  9. MOBIC [Concomitant]
  10. VITAMIN C (VITAMIN C) [Concomitant]

REACTIONS (8)
  - ASTHENIA [None]
  - BLOOD CHOLESTEROL INCREASED [None]
  - BRONCHOPNEUMONIA [None]
  - DEPRESSION [None]
  - EMOTIONAL DISORDER [None]
  - MUSCULAR WEAKNESS [None]
  - MYALGIA [None]
  - MYOPATHY [None]
